FAERS Safety Report 15626926 (Version 6)
Quarter: 2019Q4

REPORT INFORMATION
  Report Type: Report from Study
  Country: JP (occurrence: JP)
  Receive Date: 20181116
  Receipt Date: 20191104
  Transmission Date: 20200122
  Serious: Yes (Death, Hospitalization)
  Sender: FDA-Public Use
  Company Number: JP-EISAI MEDICAL RESEARCH-EC-2018-047851

PATIENT
  Age: 69 Year
  Sex: Male
  Weight: 89 kg

DRUGS (8)
  1. ALDACTONE A [Concomitant]
     Active Substance: SPIRONOLACTONE
  2. CALONAL [Concomitant]
     Active Substance: ACETAMINOPHEN
  3. CELECOX [Concomitant]
     Active Substance: CELECOXIB
  4. AMINOLEBAN EN [Concomitant]
     Active Substance: UNSPECIFIED INGREDIENT
  5. SAMSCA [Concomitant]
     Active Substance: TOLVAPTAN
  6. LENVIMA [Suspect]
     Active Substance: LENVATINIB
     Indication: HEPATOCELLULAR CARCINOMA
     Route: 048
     Dates: start: 20181022, end: 20181112
  7. LASIX [Concomitant]
     Active Substance: FUROSEMIDE
  8. LENVIMA [Suspect]
     Active Substance: LENVATINIB
     Route: 048
     Dates: start: 20181113, end: 20190107

REACTIONS (3)
  - Malignant neoplasm progression [Fatal]
  - Hypoxia [Recovered/Resolved]
  - Rash maculo-papular [Recovered/Resolved]

NARRATIVE: CASE EVENT DATE: 20181106
